FAERS Safety Report 4359621-7 (Version None)
Quarter: 2004Q2

REPORT INFORMATION
  Report Type: 
  Country: None (occurrence: None)
  Receive Date: 20040514
  Receipt Date: 20040514
  Transmission Date: 20050107
  Serious: Yes (Other)
  Sender: FDA-Public Use
  Company Number: None

PATIENT
  Age: 52 Year
  Sex: Female

DRUGS (4)
  1. FOSINOPRIL 20 MG TEVA [Suspect]
     Dosage: 20 MG DAILY
     Dates: start: 20040410, end: 20040425
  2. FOSINOPRIL 20 MG TEVA [Suspect]
     Dosage: 20 MG  2 DAILY
     Dates: start: 20040425, end: 20040510
  3. HYDROCHLOROTHIAZIDE [Concomitant]
  4. K-TAB [Concomitant]

REACTIONS (1)
  - BLOOD PRESSURE INCREASED [None]
